FAERS Safety Report 20748507 (Version 1)
Quarter: 2022Q2

REPORT INFORMATION
  Report Type: Spontaneous
  Country: US (occurrence: US)
  Receive Date: 20220426
  Receipt Date: 20220426
  Transmission Date: 20220720
  Serious: No
  Sender: FDA-Public Use
  Company Number: US-MTPC-MTDA2022-0010308

PATIENT
  Sex: Female

DRUGS (1)
  1. RADICAVA [Suspect]
     Active Substance: EDARAVONE
     Indication: Product used for unknown indication
     Dosage: 14 DAYS OF 2 SHOTS A DAY THEN 14 DAYS BREAK
     Route: 065

REACTIONS (1)
  - Gait inability [Recovering/Resolving]
